FAERS Safety Report 26109326 (Version 1)
Quarter: 2025Q4

REPORT INFORMATION
  Report Type: Spontaneous
  Country: US (occurrence: US)
  Receive Date: 20251201
  Receipt Date: 20251201
  Transmission Date: 20260117
  Serious: Yes (Other)
  Sender: NOVO NORDISK
  Company Number: US-NOVOPROD-1571630

PATIENT
  Sex: Male
  Weight: 102.04 kg

DRUGS (1)
  1. OZEMPIC [Suspect]
     Active Substance: SEMAGLUTIDE
     Indication: Diabetes mellitus
     Dosage: 0.5 MG QW
     Route: 058

REACTIONS (5)
  - Femur fracture [Not Recovered/Not Resolved]
  - Living in residential institution [Unknown]
  - Patella fracture [Not Recovered/Not Resolved]
  - Walking aid user [Recovered/Resolved]
  - Skin atrophy [Unknown]
